FAERS Safety Report 6822253-2 (Version None)
Quarter: 2010Q3

REPORT INFORMATION
  Report Type: 
  Country: None (occurrence: None)
  Receive Date: 20100708
  Receipt Date: 20100706
  Transmission Date: 20110219
  Serious: Yes (Hospitalization, Other)
  Sender: FDA-Public Use
  Company Number: US-ROXANE LABORATORIES, INC.-2010-RO-00793RO

PATIENT
  Age: 54 Year
  Sex: Female

DRUGS (5)
  1. METHADONE [Suspect]
     Indication: SELF-MEDICATION
     Dosage: 40 MG
  2. METHADONE [Suspect]
     Indication: PAIN
     Dosage: 60 MG
  3. COCAINE [Suspect]
     Indication: SUBSTANCE ABUSE
  4. HEROIN [Suspect]
     Indication: SUBSTANCE ABUSE
  5. MARIJUANA [Suspect]
     Indication: SUBSTANCE ABUSE

REACTIONS (7)
  - FEMALE GENITAL TRACT FISTULA [None]
  - HYDRONEPHROSIS [None]
  - POSTOPERATIVE ILEUS [None]
  - SQUAMOUS CELL CARCINOMA OF THE CERVIX [None]
  - SUBSTANCE ABUSE [None]
  - URETERAL DISORDER [None]
  - UROGENITAL FISTULA [None]
